FAERS Safety Report 4295043-5 (Version None)
Quarter: 2004Q1

REPORT INFORMATION
  Report Type: 
  Country: None (occurrence: None)
  Receive Date: 20040213
  Receipt Date: 20040129
  Transmission Date: 20041129
  Serious: Yes (Hospitalization, Other)
  Sender: FDA-Public Use
  Company Number: 2004S1000279

PATIENT
  Age: 13 Year
  Sex: Male

DRUGS (1)
  1. CLONAZEPAM [Suspect]
     Dates: start: 20040127

REACTIONS (3)
  - ATAXIA [None]
  - GAIT DISTURBANCE [None]
  - MEDICATION ERROR [None]
